FAERS Safety Report 6604437-1 (Version None)
Quarter: 2010Q1

REPORT INFORMATION
  Report Type: 
  Country: None (occurrence: None)
  Receive Date: 20100226
  Receipt Date: 20091008
  Transmission Date: 20100710
  Serious: No
  Sender: FDA-Public Use
  Company Number: A0810943A

PATIENT
  Sex: Female

DRUGS (1)
  1. LAMICTAL CD [Suspect]
     Route: 048
     Dates: start: 20090808, end: 20090904

REACTIONS (15)
  - ANXIETY [None]
  - CHEST PAIN [None]
  - CRYING [None]
  - DECREASED APPETITE [None]
  - DIARRHOEA [None]
  - FATIGUE [None]
  - FEAR OF DEATH [None]
  - INSOMNIA [None]
  - LYMPHADENOPATHY [None]
  - MALAISE [None]
  - POISONING [None]
  - RASH [None]
  - SKIN BURNING SENSATION [None]
  - TREMOR [None]
  - VOMITING [None]
